FAERS Safety Report 24404116 (Version 1)
Quarter: 2024Q4

REPORT INFORMATION
  Report Type: Spontaneous
  Country: US (occurrence: US)
  Receive Date: 20241007
  Receipt Date: 20241007
  Transmission Date: 20250114
  Serious: No
  Sender: RANBAXY
  Company Number: US-SUN PHARMACEUTICAL INDUSTRIES LTD-2024R1-463038

PATIENT
  Sex: Male

DRUGS (4)
  1. CEQUA [Suspect]
     Active Substance: CYCLOSPORINE
     Indication: Dry eye
     Dosage: UNK, BID
     Route: 047
     Dates: end: 20240724
  2. Adigesic [Concomitant]
     Indication: Asthma
     Dosage: UNKNOWN
     Route: 065
  3. XDEMVY [Concomitant]
     Active Substance: LOTILANER
     Indication: Product used for unknown indication
     Dosage: UNKNOWN
     Route: 065
  4. Klarity-C drops [Concomitant]
     Indication: Eye disorder

REACTIONS (2)
  - Product dose omission issue [Unknown]
  - Product use issue [Unknown]
